FAERS Safety Report 5904745-3 (Version None)
Quarter: 2008Q3

REPORT INFORMATION
  Report Type: 
  Country: None (occurrence: None)
  Receive Date: 20080909
  Receipt Date: 20080410
  Transmission Date: 20090109
  Serious: Yes (Other)
  Sender: FDA-Public Use
  Company Number: 163-20785-08040885

PATIENT
  Age: 85 Year
  Sex: Male

DRUGS (2)
  1. THALOMID [Suspect]
     Indication: MULTIPLE MYELOMA
     Dosage: 100 MG, 1 IN 1 D, ORAL ; 50 MG, 1 IN 1 D, ORAL
     Route: 047
     Dates: start: 20071219, end: 20080101
  2. THALOMID [Suspect]
     Indication: MULTIPLE MYELOMA
     Dosage: 100 MG, 1 IN 1 D, ORAL ; 50 MG, 1 IN 1 D, ORAL
     Route: 047
     Dates: start: 20080208

REACTIONS (1)
  - PULMONARY EMBOLISM [None]
